FAERS Safety Report 25525720 (Version 3)
Quarter: 2025Q3

REPORT INFORMATION
  Report Type: Spontaneous
  Country: EU (occurrence: EU)
  Receive Date: 20250707
  Receipt Date: 20250731
  Transmission Date: 20251021
  Serious: Yes (Hospitalization, Other)
  Sender: NOVARTIS
  Company Number: None

PATIENT
  Age: 17 Year
  Sex: Male
  Weight: 55.6 kg

DRUGS (12)
  1. DICLOFENAC [Suspect]
     Active Substance: DICLOFENAC
     Indication: Biliary tract operation
     Route: 054
     Dates: start: 20250522, end: 20250522
  2. DICLOFENAC [Suspect]
     Active Substance: DICLOFENAC
     Indication: Biliary tract operation
  3. MYFORTIC [Suspect]
     Active Substance: MYCOPHENOLATE SODIUM
     Indication: Prophylaxis against transplant rejection
     Dosage: 720 MG, BID(720 MG, BID)
     Route: 048
     Dates: start: 20250522
  4. FLUCONAZOLE [Suspect]
     Active Substance: FLUCONAZOLE
     Indication: Osseous cryptococcosis
     Dosage: 400 MG, Q12H
     Route: 048
     Dates: start: 20250408
  5. FLUCONAZOLE [Suspect]
     Active Substance: FLUCONAZOLE
     Route: 048
  6. CELLCEPT [Suspect]
     Active Substance: MYCOPHENOLATE MOFETIL
     Indication: Prophylaxis against transplant rejection
     Dosage: 500 MG, Q12H(500 MG, BID)
     Route: 048
     Dates: start: 20241013, end: 20250520
  7. CELLCEPT [Suspect]
     Active Substance: MYCOPHENOLATE MOFETIL
     Dosage: 500 MG, Q12H(500 MG, BID)
     Route: 048
     Dates: start: 20241013, end: 20250520
  8. CELLCEPT [Suspect]
     Active Substance: MYCOPHENOLATE MOFETIL
     Dosage: 500 MG, Q12H(500 MG, BID)
     Route: 048
     Dates: start: 20241013, end: 20250520
  9. ENVARSUS XR [Suspect]
     Active Substance: TACROLIMUS
     Indication: Prophylaxis against transplant rejection
     Dosage: 1 MG, Q12H (1 MG, Q12H, COMPRIM? ? LIB?RATION PROLONG?E)
     Route: 048
     Dates: start: 20241013
  10. ENVARSUS XR [Suspect]
     Active Substance: TACROLIMUS
     Route: 048
  11. TENOFOVIR DISOPROXIL FUMARATE [Suspect]
     Active Substance: TENOFOVIR DISOPROXIL FUMARATE
     Indication: Viral hepatitis carrier
     Dosage: 245 MG, QD(245 MG, QD)
     Route: 048
     Dates: start: 202406
  12. AMBISOME [Suspect]
     Active Substance: AMPHOTERICIN B
     Indication: Osseous cryptococcosis
     Dosage: 3 MG/KG, QD
     Route: 042
     Dates: start: 20250328, end: 20250408

REACTIONS (2)
  - Acute kidney injury [Recovered/Resolved]
  - Skin hyperpigmentation [Unknown]

NARRATIVE: CASE EVENT DATE: 20250516
